FAERS Safety Report 18252185 (Version 3)
Quarter: 2021Q1

REPORT INFORMATION
  Report Type: Spontaneous
  Country: US (occurrence: US)
  Receive Date: 20200910
  Receipt Date: 20210315
  Transmission Date: 20210419
  Serious: No
  Sender: FDA-Public Use
  Company Number: US-FARMAPROD-202005-0659

PATIENT
  Sex: Female

DRUGS (4)
  1. OXERVATE [Suspect]
     Active Substance: CENEGERMIN-BKBJ
     Route: 047
     Dates: start: 20201113
  2. REWETTING [Concomitant]
     Dosage: DROPS/GEL
  3. VITAL TEARS [Concomitant]
  4. OXERVATE [Suspect]
     Active Substance: CENEGERMIN-BKBJ
     Indication: NEUROTROPHIC KERATOPATHY
     Route: 047
     Dates: start: 20200504, end: 20200615

REACTIONS (4)
  - Eye pain [Unknown]
  - Disease recurrence [Unknown]
  - Therapy interrupted [Unknown]
  - Eyelid pain [Unknown]
